FAERS Safety Report 10189642 (Version 1)
Quarter: 2014Q2

REPORT INFORMATION
  Report Type: Spontaneous
  Country: US (occurrence: US)
  Receive Date: 20140522
  Receipt Date: 20140522
  Transmission Date: 20141212
  Serious: Yes (Other)
  Sender: FDA-Public Use
  Company Number: US-SA-2014SA018989

PATIENT
  Age: 66 Year
  Sex: Female

DRUGS (2)
  1. LANTUS SOLOSTAR [Suspect]
     Indication: DIABETES MELLITUS
     Dosage: DOSE:30 UNIT(S)
     Route: 051
     Dates: start: 20140210
  2. SOLOSTAR [Concomitant]
     Indication: DIABETES MELLITUS
     Dates: start: 20140210

REACTIONS (5)
  - Rash [Not Recovered/Not Resolved]
  - Pruritus [Not Recovered/Not Resolved]
  - Fatigue [Not Recovered/Not Resolved]
  - Somnolence [Not Recovered/Not Resolved]
  - Blood glucose increased [Not Recovered/Not Resolved]
